FAERS Safety Report 9553603 (Version 1)
Quarter: 2013Q3

REPORT INFORMATION
  Report Type: Spontaneous
  Country: US (occurrence: None)
  Receive Date: 20130924
  Receipt Date: 20130924
  Transmission Date: 20140515
  Serious: Yes (Disabling)
  Sender: FDA-Public Use
  Company Number: None

PATIENT
  Age: 88 Year
  Sex: Female
  Weight: 102.06 kg

DRUGS (1)
  1. PROLIA [Suspect]

REACTIONS (4)
  - Flatulence [None]
  - Muscle spasms [None]
  - Abdominal pain [None]
  - Diarrhoea [None]
